FAERS Safety Report 22188151 (Version 1)
Quarter: 2023Q2

REPORT INFORMATION
  Report Type: Spontaneous
  Country: DK (occurrence: DK)
  Receive Date: 20230408
  Receipt Date: 20230408
  Transmission Date: 20230722
  Serious: Yes (Other)
  Sender: FDA-Public Use
  Company Number: None

PATIENT
  Age: 61 Year
  Sex: Male
  Weight: 83 kg

DRUGS (3)
  1. ATORVASTATIN [Suspect]
     Active Substance: ATORVASTATIN
     Indication: Hypercholesterolaemia
     Route: 065
     Dates: start: 201801, end: 20201208
  2. LOSARTAN POTASSIUM ^KRKA^ [Concomitant]
     Indication: Hypertension
     Dates: start: 201801
  3. METFORMIN [Concomitant]
     Active Substance: METFORMIN HYDROCHLORIDE
     Indication: Type 2 diabetes mellitus
     Route: 065
     Dates: start: 201712

REACTIONS (1)
  - Polymyositis [Not Recovered/Not Resolved]

NARRATIVE: CASE EVENT DATE: 20200101
